FAERS Safety Report 10305549 (Version 1)
Quarter: 2014Q3

REPORT INFORMATION
  Report Type: Spontaneous
  Country: US (occurrence: None)
  Receive Date: 20140714
  Receipt Date: 20140714
  Transmission Date: 20150326
  Serious: Yes (Death)
  Sender: FDA-Public Use
  Company Number: None

PATIENT
  Age: 62 Year
  Sex: Male
  Weight: 86.3 kg

DRUGS (18)
  1. ASPIRIN. [Concomitant]
     Active Substance: ASPIRIN
  2. MVI [Concomitant]
     Active Substance: VITAMINS
  3. PREDNISOLONE. [Concomitant]
     Active Substance: PREDNISOLONE
  4. RESTORIL [Concomitant]
     Active Substance: TEMAZEPAM
  5. METOPROLOL [Concomitant]
     Active Substance: METOPROLOL
  6. COMBIGAN [Concomitant]
     Active Substance: BRIMONIDINE TARTRATE\TIMOLOL MALEATE
  7. IBUPROFEN. [Concomitant]
     Active Substance: IBUPROFEN
  8. LOVASTATIN. [Concomitant]
     Active Substance: LOVASTATIN
  9. CALCIUM CARBONATE. [Concomitant]
     Active Substance: CALCIUM CARBONATE
  10. PRADAXA [Suspect]
     Active Substance: DABIGATRAN ETEXILATE MESYLATE
     Indication: ATRIAL FIBRILLATION
     Dosage: 1 CAPSULE, BID, ORAL
     Route: 048
  11. BUPROPION [Concomitant]
     Active Substance: BUPROPION
  12. AMBIEN [Concomitant]
     Active Substance: ZOLPIDEM TARTRATE
  13. VIAGRA [Concomitant]
     Active Substance: SILDENAFIL CITRATE
  14. RELPAX [Concomitant]
     Active Substance: ELETRIPTAN HYDROBROMIDE
  15. MAG OX [Concomitant]
     Active Substance: MAGNESIUM OXIDE
  16. LOMOTIL [Concomitant]
     Active Substance: ATROPINE SULFATE\DIPHENOXYLATE HYDROCHLORIDE
  17. ALLEGRA [Concomitant]
     Active Substance: FEXOFENADINE HYDROCHLORIDE
  18. MOXIFLOXACIN [Concomitant]
     Active Substance: MOXIFLOXACIN

REACTIONS (5)
  - Atrial fibrillation [None]
  - Hemiparesis [None]
  - VIIth nerve paralysis [None]
  - Coma [None]
  - Respiratory distress [None]

NARRATIVE: CASE EVENT DATE: 20140702
